FAERS Safety Report 4469169-7 (Version None)
Quarter: 2004Q4

REPORT INFORMATION
  Report Type: 
  Country: None (occurrence: None)
  Receive Date: 20041005
  Receipt Date: 20040922
  Transmission Date: 20050328
  Serious: Yes (Other)
  Sender: FDA-Public Use
  Company Number: K200401441

PATIENT
  Age: 66 Year
  Sex: Female

DRUGS (4)
  1. ALTACE [Suspect]
     Indication: HYPERTENSION
     Dosage: 2.5 MG , QD, ORAL
     Route: 048
     Dates: start: 20040501
  2. TRIAVIL 2-10 [Concomitant]
  3. STEMETIL ^AVENTIS PHARMA^ (PROCHLORPERAZINE), 10 MG [Concomitant]
  4. SYNTHROID [Concomitant]

REACTIONS (3)
  - CHRONIC MYELOID LEUKAEMIA [None]
  - GLIOBLASTOMA [None]
  - HAEMOLYTIC ANAEMIA [None]
